FAERS Safety Report 10077323 (Version 2)
Quarter: 2014Q2

REPORT INFORMATION
  Report Type: Spontaneous
  Country: US (occurrence: US)
  Receive Date: 20140414
  Receipt Date: 20140414
  Transmission Date: 20141212
  Serious: No
  Sender: FDA-Public Use
  Company Number: US-BANPHARM-20131322

PATIENT
  Age: 70 Year
  Sex: Female
  Weight: 53.98 kg

DRUGS (5)
  1. ALEVE LIQUID GELS 220 MG [Suspect]
     Route: 048
     Dates: start: 20130507
  2. ANTACID [Concomitant]
  3. FORTEO [Concomitant]
  4. ATENOLOL [Concomitant]
  5. LEVOTHYROXINE [Concomitant]

REACTIONS (2)
  - Foreign body [Recovered/Resolved]
  - Throat irritation [Recovered/Resolved]
